FAERS Safety Report 7032847-X (Version None)
Quarter: 2010Q4

REPORT INFORMATION
  Report Type: 
  Country: None (occurrence: None)
  Receive Date: 20101007
  Receipt Date: 20090929
  Transmission Date: 20110411
  Serious: No
  Sender: FDA-Public Use
  Company Number: US-PFIZER INC-2009276668

PATIENT
  Sex: Female

DRUGS (3)
  1. ANTIVERT [Suspect]
     Indication: INNER EAR DISORDER
     Dosage: 12.5 MG, 2X/DAY
     Route: 048
     Dates: start: 20060101
  2. ANTIVERT [Suspect]
     Indication: DIZZINESS
  3. TOPROL-XL [Concomitant]
     Indication: BLOOD PRESSURE
     Dosage: UNK

REACTIONS (1)
  - DIZZINESS [None]
